FAERS Safety Report 7731110-9 (Version None)
Quarter: 2011Q3

REPORT INFORMATION
  Report Type: 
  Country: None (occurrence: None)
  Receive Date: 20110906
  Receipt Date: 20110906
  Transmission Date: 20111222
  Serious: Yes (Other)
  Sender: FDA-Public Use
  Company Number: None

PATIENT
  Age: 46 Year
  Sex: Female
  Weight: 83.6 kg

DRUGS (1)
  1. SAVELLA [Suspect]
     Indication: FIBROMYALGIA
     Dates: start: 20110901, end: 20110903

REACTIONS (8)
  - NAUSEA [None]
  - DECREASED APPETITE [None]
  - HYPERTENSION [None]
  - TACHYCARDIA [None]
  - HEADACHE [None]
  - VERTIGO [None]
  - DIARRHOEA [None]
  - DIZZINESS [None]
